FAERS Safety Report 25751375 (Version 1)
Quarter: 2025Q3

REPORT INFORMATION
  Report Type: Spontaneous
  Country: CO (occurrence: None)
  Receive Date: 20250831
  Receipt Date: 20250831
  Transmission Date: 20251020
  Serious: Yes (unspecified)
  Sender: FDA-CTU
  Company Number: None

PATIENT
  Age: 37 Year
  Sex: Female
  Weight: 60 kg

DRUGS (2)
  1. OZEMPIC [Suspect]
     Active Substance: SEMAGLUTIDE
     Indication: Overweight
  2. SAXENDA [Suspect]
     Active Substance: LIRAGLUTIDE

REACTIONS (11)
  - Muscle contractions involuntary [None]
  - Sinus tachycardia [None]
  - Weight increased [None]
  - Insomnia [None]
  - Electric shock sensation [None]
  - Impaired quality of life [None]
  - Anxiety [None]
  - Fatigue [None]
  - Palpitations [None]
  - Hyperadrenalism [None]
  - Autonomic nervous system imbalance [None]

NARRATIVE: CASE EVENT DATE: 20250405
